FAERS Safety Report 9610828 (Version 1)
Quarter: 2013Q4

REPORT INFORMATION
  Report Type: Spontaneous
  Country: DK (occurrence: DK)
  Receive Date: 20131009
  Receipt Date: 20131009
  Transmission Date: 20140711
  Serious: Yes (Death, Life-Threatening)
  Sender: FDA-Public Use
  Company Number: DK-BAYER-2013-120331

PATIENT
  Age: 1 Year
  Sex: Female
  Weight: 9 kg

DRUGS (12)
  1. AVELOX [Suspect]
     Indication: DISSEMINATED TUBERCULOSIS
     Dosage: 90 MG, QD
     Route: 042
     Dates: start: 20130524
  2. BIKLIN [Suspect]
     Indication: DISSEMINATED TUBERCULOSIS
     Dosage: 175 MG, QD
     Route: 042
     Dates: start: 20130524
  3. EREMFAT [Suspect]
     Indication: DISSEMINATED TUBERCULOSIS
     Dosage: 175 MG, QD
     Route: 042
     Dates: start: 20130524
  4. ISONIAZID [Suspect]
     Dosage: 135 MG, QD
     Route: 042
     Dates: start: 20130524
  5. MYAMBUTOL [Suspect]
     Indication: DISSEMINATED TUBERCULOSIS
     Dosage: 200 MG, QD
     Route: 048
     Dates: start: 20130524
  6. VOLTAREN [Suspect]
     Dosage: UNK
     Route: 054
     Dates: start: 201305
  7. PARACETAMOL [Suspect]
     Indication: PAIN
     Dosage: UNK
     Route: 048
     Dates: start: 201302
  8. DIFLUCAN [Suspect]
     Indication: COMBINED IMMUNODEFICIENCY
     Dosage: 2 ML, QD
     Route: 048
     Dates: start: 201302
  9. ACICLOVIR [Suspect]
     Indication: COMBINED IMMUNODEFICIENCY
     Dosage: 2.5 ML, BID
     Route: 048
     Dates: start: 201302
  10. BACTRIM [Suspect]
     Indication: COMBINED IMMUNODEFICIENCY
     Dosage: UNK
     Route: 048
     Dates: start: 201302
  11. PROLEUKIN [Suspect]
     Indication: DISSEMINATED TUBERCULOSIS
     Dosage: UNK
     Route: 058
     Dates: start: 20130822
  12. IMMUNOGLOBULIN HUMAN NORMAL [Concomitant]
     Indication: COMBINED IMMUNODEFICIENCY
     Dosage: UNK
     Dates: start: 201302

REACTIONS (7)
  - Respiratory arrest [Fatal]
  - Abdominal distension [Unknown]
  - Oedema peripheral [Unknown]
  - Dyskinesia [Unknown]
  - Cardiac arrest [Fatal]
  - Drug interaction [Unknown]
  - Vomiting [Unknown]
